FAERS Safety Report 7277188-0 (Version None)
Quarter: 2010Q4

REPORT INFORMATION
  Report Type: 
  Country: None (occurrence: None)
  Receive Date: 20101201
  Receipt Date: 20100816
  Transmission Date: 20110411
  Serious: Yes (Hospitalization, Other)
  Sender: FDA-Public Use
  Company Number: 244356USA

PATIENT
  Age: 66 Year
  Sex: Female
  Weight: 120.2032 kg

DRUGS (14)
  1. DIAMOX SRC [Suspect]
     Indication: PAPILLOEDEMA
     Dosage: 1500 MG (500 MG, 3 IN 1 D)
     Dates: start: 20100501
  2. POTASSIUM [Concomitant]
  3. ALLOPURINOL [Concomitant]
  4. HYDROCODONE [Concomitant]
  5. VERAPAMIL [Concomitant]
  6. ZOLPIDEM [Concomitant]
  7. LISINOPRIL [Concomitant]
  8. VENLAFAXINE [Concomitant]
  9. TRAZODONE [Concomitant]
  10. GLIPIZIDE [Concomitant]
  11. WARFARIN SODIUM [Concomitant]
  12. ACETYLSALICYLIC ACID [Concomitant]
  13. INSULIN [Concomitant]
  14. INSULIN GLARGINE [Concomitant]

REACTIONS (9)
  - BLOOD GLUCOSE INCREASED [None]
  - BLOOD PRESSURE INCREASED [None]
  - CONFUSIONAL STATE [None]
  - DEHYDRATION [None]
  - DIARRHOEA [None]
  - DRUG HYPERSENSITIVITY [None]
  - HEADACHE [None]
  - NAUSEA [None]
  - SOMNOLENCE [None]
